FAERS Safety Report 9087408 (Version 2)
Quarter: 2013Q1

REPORT INFORMATION
  Report Type: Spontaneous
  Country: GB (occurrence: GB)
  Receive Date: 20130217
  Receipt Date: 20130307
  Transmission Date: 20140127
  Serious: Yes (Congenital Anomaly)
  Sender: FDA-Public Use
  Company Number: GB-TEVA-385068ISR

PATIENT
  Sex: Male

DRUGS (11)
  1. HALOPERIDOL [Suspect]
  2. ISTIN [Suspect]
  3. DEPIXOL [Suspect]
  4. DISIPAL [Suspect]
  5. VALIUM [Suspect]
  6. RELACTON-C [Suspect]
  7. KEMADRIN [Suspect]
  8. NORMAXIN [Suspect]
  9. SURMONTIL [Suspect]
  10. SPARINE [Suspect]
  11. DROLEPTAN [Suspect]

REACTIONS (3)
  - Maternal exposure before pregnancy [Unknown]
  - Respiratory disorder [Unknown]
  - Lymphadenopathy [Unknown]
